FAERS Safety Report 24834072 (Version 1)
Quarter: 2025Q1

REPORT INFORMATION
  Report Type: Report from Study
  Country: CN (occurrence: CN)
  Receive Date: 20250113
  Receipt Date: 20250113
  Transmission Date: 20250409
  Serious: Yes (Other)
  Sender: PFIZER
  Company Number: CN-TAKEDA-2023TUS047058

PATIENT
  Age: 43 Year
  Sex: Male
  Weight: 70 kg

DRUGS (5)
  1. BRENTUXIMAB VEDOTIN [Suspect]
     Active Substance: BRENTUXIMAB VEDOTIN
     Indication: Non-Hodgkin^s lymphoma
     Dosage: 100 MILLIGRAM, Q3WEEKS
     Route: 041
     Dates: start: 20230505
  2. BRENTUXIMAB VEDOTIN [Suspect]
     Active Substance: BRENTUXIMAB VEDOTIN
     Indication: T-cell lymphoma
  3. GEMCITABINE [Concomitant]
     Active Substance: GEMCITABINE
     Indication: Lymphoma
     Dosage: 1.7 GRAM, QD
     Route: 041
     Dates: start: 20230506, end: 20230506
  4. OXALIPLATIN [Concomitant]
     Active Substance: OXALIPLATIN
     Indication: Lymphoma
     Dosage: 200 MILLIGRAM, QD
     Route: 041
     Dates: start: 20230507, end: 20230507
  5. PEGASPARGASE [Concomitant]
     Active Substance: PEGASPARGASE
     Indication: Lymphoma
     Dosage: 3750 INTERNATIONAL UNIT, QD
     Route: 030
     Dates: start: 20230506, end: 20230506

REACTIONS (5)
  - Renal failure [Recovered/Resolved]
  - Myelosuppression [Recovered/Resolved]
  - Aspartate aminotransferase increased [Recovered/Resolved]
  - Blood creatinine increased [Recovered/Resolved]
  - Hypoproteinaemia [Recovered/Resolved]

NARRATIVE: CASE EVENT DATE: 20230807
